FAERS Safety Report 20525557 (Version 2)
Quarter: 2022Q1

REPORT INFORMATION
  Report Type: Spontaneous
  Country: US (occurrence: US)
  Receive Date: 20220228
  Receipt Date: 20220309
  Transmission Date: 20220423
  Serious: No
  Sender: FDA-Public Use
  Company Number: US-TEVA-2022-US-2004895

PATIENT
  Sex: Female

DRUGS (2)
  1. TRAZODONE HYDROCHLORIDE [Suspect]
     Active Substance: TRAZODONE HYDROCHLORIDE
     Route: 065
     Dates: start: 1993
  2. TRAZODONE HYDROCHLORIDE [Suspect]
     Active Substance: TRAZODONE HYDROCHLORIDE
     Dosage: 100MG IN A HALF TABLET TO MAKE 150MG
     Route: 065

REACTIONS (11)
  - Migraine [Unknown]
  - Vomiting [Unknown]
  - Headache [Unknown]
  - Facial pain [Unknown]
  - Pain in jaw [Unknown]
  - Pain in extremity [Unknown]
  - Restlessness [Unknown]
  - Product physical issue [Unknown]
  - Dizziness [Unknown]
  - Feeling abnormal [Unknown]
  - Wrong technique in product usage process [Unknown]
